FAERS Safety Report 14525718 (Version 2)
Quarter: 2018Q3

REPORT INFORMATION
  Report Type: Report from Study
  Country: SE (occurrence: SE)
  Receive Date: 20180213
  Receipt Date: 20180813
  Transmission Date: 20181010
  Serious: Yes (Death, Other)
  Sender: FDA-Public Use
  Company Number: SE-ROCHE-2072887

PATIENT

DRUGS (6)
  1. IBRUTINIB [Suspect]
     Active Substance: IBRUTINIB
     Indication: MANTLE CELL LYMPHOMA REFRACTORY
     Dosage: DAY (1?28) UPTO CYCLE 12 (INDUCTION PHASE)
     Route: 048
  2. RITUXIMAB. [Suspect]
     Active Substance: RITUXIMAB
     Indication: MANTLE CELL LYMPHOMA REFRACTORY
     Dosage: CYCLE 1 DAY 1
     Route: 042
  3. IBRUTINIB [Suspect]
     Active Substance: IBRUTINIB
     Dosage: DAY 1?56 (MAINTENANCE PHASE)
     Route: 048
  4. APIXABAN [Concomitant]
     Active Substance: APIXABAN
  5. LENALIDOMIDE [Suspect]
     Active Substance: LENALIDOMIDE
     Indication: MANTLE CELL LYMPHOMA REFRACTORY
     Dosage: DAYS (1?21) UPTO CYCLE 12
     Route: 048
  6. RITUXIMAB. [Suspect]
     Active Substance: RITUXIMAB
     Indication: MANTLE CELL LYMPHOMA REFRACTORY
     Dosage: ONCE A WEEK DURING CYCLE 1 AND THEN ONCE EVERY 8 WEEKS.
     Route: 058

REACTIONS (2)
  - Embolic stroke [Fatal]
  - Atrial fibrillation [Unknown]
